FAERS Safety Report 24857593 (Version 1)
Quarter: 2025Q1

REPORT INFORMATION
  Report Type: Spontaneous
  Country: JP (occurrence: JP)
  Receive Date: 20250117
  Receipt Date: 20250117
  Transmission Date: 20250409
  Serious: Yes (Death, Hospitalization)
  Sender: EISAI
  Company Number: JP-Eisai-202405760_LEN-HCC_P_1

PATIENT
  Sex: Male

DRUGS (2)
  1. LENVIMA [Suspect]
     Active Substance: LENVATINIB
     Indication: Hepatocellular carcinoma
     Route: 048
  2. CISPLATIN [Suspect]
     Active Substance: CISPLATIN
     Indication: Hepatocellular carcinoma
     Route: 065

REACTIONS (2)
  - Hepatic cirrhosis [Fatal]
  - Bile duct stenosis [Not Recovered/Not Resolved]
